FAERS Safety Report 22217797 (Version 2)
Quarter: 2023Q2

REPORT INFORMATION
  Report Type: Spontaneous
  Country: US (occurrence: US)
  Receive Date: 20230417
  Receipt Date: 20230525
  Transmission Date: 20230722
  Serious: Yes (Hospitalization, Other)
  Sender: FDA-Public Use
  Company Number: US-LUPIN PHARMACEUTICALS INC.-2023-02849

PATIENT
  Age: 56 Year
  Sex: Female

DRUGS (17)
  1. METHYLPREDNISOLONE [Suspect]
     Active Substance: METHYLPREDNISOLONE
     Indication: Acute graft versus host disease
     Dosage: 1.6 MILLIGRAM/KILOGRAM
     Route: 065
     Dates: start: 201908
  2. HYDROCORTISONE [Suspect]
     Active Substance: HYDROCORTISONE
     Indication: Infusion related reaction
     Dosage: UNK
     Route: 065
  3. HYDROCORTISONE [Suspect]
     Active Substance: HYDROCORTISONE
     Indication: Hypotension
  4. HYDROCORTISONE [Suspect]
     Active Substance: HYDROCORTISONE
     Indication: Pyrexia
  5. HYDROCORTISONE [Suspect]
     Active Substance: HYDROCORTISONE
     Indication: Chills
  6. FLUDARABINE [Suspect]
     Active Substance: FLUDARABINE PHOSPHATE
     Indication: Immunosuppressant drug therapy
     Dosage: UNK, RECEIVED UNDER CONDITIONING REGIMEN
     Route: 065
     Dates: start: 201905
  7. MELPHALAN [Suspect]
     Active Substance: MELPHALAN
     Indication: Immunosuppressant drug therapy
     Dosage: UNK, RECEIVED UNDER CONDITIONING REGIMEN
     Route: 065
     Dates: start: 201905
  8. TACROLIMUS [Suspect]
     Active Substance: TACROLIMUS
     Indication: Prophylaxis against graft versus host disease
     Dosage: UNK, RECEIVED AFTER ALLOGENEIC PERIPHERAL HAEMATOPOIETIC STEM CELL TRANSPLANT
     Route: 065
     Dates: start: 201905
  9. TACROLIMUS [Suspect]
     Active Substance: TACROLIMUS
     Dosage: UNK, THERAPY RESTARTED AFTER DISCONTINUED FOR A SHORT DURATION; DOSE UNKNOWN
     Route: 065
     Dates: start: 2019, end: 201908
  10. ALEMTUZUMAB [Suspect]
     Active Substance: ALEMTUZUMAB
     Indication: Prophylaxis against graft versus host disease
     Dosage: UNK, RECEIVED AFTER ALLOGENEIC PERIPHERAL HAEMATOPOIETIC STEM CELL TRANSPLANT
     Route: 065
     Dates: start: 201905
  11. SIROLIMUS [Suspect]
     Active Substance: SIROLIMUS
     Indication: Prophylaxis against graft versus host disease
     Dosage: UNK, RECEIVED AFTER ALLOGENEIC PERIPHERAL HAEMATOPOIETIC STEM CELL TRANSPLANT
     Route: 065
     Dates: start: 2019
  12. PREDNISONE [Suspect]
     Active Substance: PREDNISONE
     Indication: Acute graft versus host disease
     Dosage: 0.5 MILLIGRAM/KILOGRAM, QD
     Route: 065
     Dates: start: 201908
  13. PREDNISONE [Suspect]
     Active Substance: PREDNISONE
     Dosage: 10 MILLIGRAM, QD (TAPERED DOSE)
     Route: 065
     Dates: start: 20190912
  14. VALACYCLOVIR [Concomitant]
     Active Substance: VALACYCLOVIR HYDROCHLORIDE
     Indication: Antiviral prophylaxis
     Dosage: UNK
     Route: 065
  15. FLUCONAZOLE [Concomitant]
     Active Substance: FLUCONAZOLE
     Indication: Antifungal prophylaxis
     Dosage: UNK
     Route: 065
  16. LETERMOVIR [Concomitant]
     Active Substance: LETERMOVIR
     Indication: Antiviral prophylaxis
     Dosage: UNK
     Route: 065
  17. SULFAMETHOXAZOLE\TRIMETHOPRIM [Concomitant]
     Active Substance: SULFAMETHOXAZOLE\TRIMETHOPRIM
     Indication: Antibiotic prophylaxis
     Dosage: UNK
     Route: 065

REACTIONS (2)
  - Post transplant lymphoproliferative disorder [Recovering/Resolving]
  - Off label use [Unknown]

NARRATIVE: CASE EVENT DATE: 20190101
